FAERS Safety Report 18901520 (Version 1)
Quarter: 2021Q1

REPORT INFORMATION
  Report Type: Spontaneous
  Country: KR (occurrence: KR)
  Receive Date: 20210217
  Receipt Date: 20210217
  Transmission Date: 20210420
  Serious: Yes (Life-Threatening, Hospitalization, Other)
  Sender: FDA-Public Use
  Company Number: KR-EUSA PHARMA (UK) LIMITED-2021KR000023

PATIENT

DRUGS (2)
  1. SYLVANT [Suspect]
     Active Substance: SILTUXIMAB
     Indication: CASTLEMAN^S DISEASE
     Dosage: UNK, (CYCLE 1)
     Route: 065
     Dates: start: 202101, end: 2021
  2. SYLVANT [Suspect]
     Active Substance: SILTUXIMAB
     Dosage: UNK, (CYCLE 2)
     Route: 065
     Dates: start: 2021

REACTIONS (4)
  - Pyrexia [Unknown]
  - Sepsis [Unknown]
  - Multiple organ dysfunction syndrome [Unknown]
  - Critical illness [Unknown]

NARRATIVE: CASE EVENT DATE: 2021
